FAERS Safety Report 13954129 (Version 1)
Quarter: 2017Q3

REPORT INFORMATION
  Report Type: Spontaneous
  Country: US (occurrence: None)
  Receive Date: 20170909
  Receipt Date: 20170909
  Transmission Date: 20171128
  Serious: Yes (Death, Hospitalization)
  Sender: FDA-Public Use
  Company Number: None

PATIENT
  Age: 2 Year
  Sex: Female
  Weight: 11.8 kg

DRUGS (4)
  1. DEXAMETHASONE. [Suspect]
     Active Substance: DEXAMETHASONE
     Dates: end: 20131009
  2. METHOTREXATE. [Suspect]
     Active Substance: METHOTREXATE
     Dates: end: 20130813
  3. MERCAPTOPURINE. [Suspect]
     Active Substance: MERCAPTOPURINE
     Dates: end: 20131007
  4. VINCRISTINE SULFATE. [Suspect]
     Active Substance: VINCRISTINE SULFATE
     Dates: end: 20131008

REACTIONS (10)
  - Deep vein thrombosis [None]
  - Pyrexia [None]
  - Diarrhoea [None]
  - Abdominal distension [None]
  - Pneumatosis intestinalis [None]
  - Lymphopenia [None]
  - Vomiting [None]
  - Failure to thrive [None]
  - Malnutrition [None]
  - Metabolic acidosis [None]

NARRATIVE: CASE EVENT DATE: 20131219
